FAERS Safety Report 7963332-6 (Version None)
Quarter: 2011Q4

REPORT INFORMATION
  Report Type: 
  Country: None (occurrence: None)
  Receive Date: 20111208
  Receipt Date: 20111201
  Transmission Date: 20120403
  Serious: Yes (Life-Threatening, Hospitalization)
  Sender: FDA-Public Use
  Company Number: FR-AMGEN-FRASP2011063646

PATIENT
  Age: 71 Year
  Sex: Female

DRUGS (6)
  1. LYRICA [Suspect]
     Dosage: UNK
     Route: 048
     Dates: start: 20110701
  2. PANTOPRAZOLE [Suspect]
     Route: 048
  3. ASPIRIN [Suspect]
     Dosage: UNK
     Route: 048
     Dates: start: 20070101
  4. CERTICAN [Suspect]
     Dosage: 3 MG, QD
     Route: 048
     Dates: start: 20110506
  5. ARANESP [Suspect]
     Indication: PRODUCT USED FOR UNKNOWN INDICATION
     Dosage: UNK
     Route: 048
     Dates: start: 20090701
  6. MYCOPHENOLATE MOFETIL (CELLCEPT) [Suspect]
     Dosage: 1.5 G, QD
     Route: 048
     Dates: start: 20070101

REACTIONS (1)
  - ORGANISING PNEUMONIA [None]
